FAERS Safety Report 21537581 (Version 1)
Quarter: 2022Q4

REPORT INFORMATION
  Report Type: Spontaneous
  Country: US (occurrence: US)
  Receive Date: 20221101
  Receipt Date: 20221101
  Transmission Date: 20230112
  Serious: No
  Sender: FDA-Public Use
  Company Number: US-SA-SAC20221026001874

PATIENT
  Age: 58 Year
  Sex: Female
  Weight: 86 kg

DRUGS (1)
  1. FABRAZYME [Suspect]
     Active Substance: AGALSIDASE BETA
     Indication: Fabry^s disease
     Dosage: 88 MG, QOW
     Route: 042
     Dates: start: 20210412

REACTIONS (1)
  - Weight increased [Unknown]
